FAERS Safety Report 9515407 (Version 55)
Quarter: 2018Q2

REPORT INFORMATION
  Report Type: Report from Study
  Country: CA (occurrence: CA)
  Receive Date: 20130911
  Receipt Date: 20180409
  Transmission Date: 20180711
  Serious: Yes (Hospitalization, Other)
  Sender: FDA-Public Use
  Company Number: PHHY2011CA105826

PATIENT
  Age: 64 Year
  Sex: Female

DRUGS (9)
  1. IMODIUM [Concomitant]
     Active Substance: LOPERAMIDE HYDROCHLORIDE
     Indication: PRODUCT USED FOR UNKNOWN INDICATION
     Dosage: 2 DF, QHS AT BEDTIME
     Route: 048
  2. SANDOSTATIN LAR DEPOT [Suspect]
     Active Substance: OCTREOTIDE ACETATE
     Dosage: 20 MG, (EVERY 2 WEEKS)
     Route: 030
  3. SANDOSTATIN LAR DEPOT [Suspect]
     Active Substance: OCTREOTIDE ACETATE
     Dosage: 20 MG, (EVERY 2 WEEKS)
     Route: 030
     Dates: start: 20131125, end: 20170223
  4. SANDOSTATIN LAR DEPOT [Suspect]
     Active Substance: OCTREOTIDE ACETATE
     Dosage: 30 MG, EVERY 2 WEEKS
     Route: 030
     Dates: start: 20170307
  5. CALCIUM [Concomitant]
     Active Substance: CALCIUM
     Indication: PRODUCT USED FOR UNKNOWN INDICATION
     Route: 065
  6. SANDOSTATIN LAR DEPOT [Suspect]
     Active Substance: OCTREOTIDE ACETATE
     Dosage: 30 MG, EVERY 2 WEEKS
     Route: 030
     Dates: end: 20131030
  7. VITAMIN D [Concomitant]
     Active Substance: CHOLECALCIFEROL
     Indication: PRODUCT USED FOR UNKNOWN INDICATION
     Dosage: 1 DF, BID
     Route: 065
  8. SANDOSTATIN LAR DEPOT [Suspect]
     Active Substance: OCTREOTIDE ACETATE
     Indication: CARCINOID TUMOUR
     Dosage: 40 MG, EVERY 3 WEEKS
     Route: 030
     Dates: start: 20030131
  9. SANDOSTATIN [Suspect]
     Active Substance: OCTREOTIDE ACETATE
     Indication: CARCINOID TUMOUR
     Dosage: UNK
     Route: 058

REACTIONS (52)
  - Back pain [Recovering/Resolving]
  - Musculoskeletal pain [Recovering/Resolving]
  - Musculoskeletal stiffness [Unknown]
  - Mass [Unknown]
  - Needle issue [Unknown]
  - Hypokalaemia [Unknown]
  - Nausea [Unknown]
  - Metastases to liver [Unknown]
  - Body temperature decreased [Unknown]
  - Poor quality sleep [Unknown]
  - Asthenia [Unknown]
  - Drug ineffective [Unknown]
  - Abdominal pain upper [Recovered/Resolved]
  - Magnesium deficiency [Unknown]
  - Blood pressure systolic increased [Unknown]
  - Metastases to lung [Unknown]
  - Urinary tract infection [Recovered/Resolved]
  - Bone deformity [Unknown]
  - Hair growth abnormal [Unknown]
  - Influenza like illness [Unknown]
  - Headache [Unknown]
  - Product quality issue [Unknown]
  - Gastric ulcer [Recovering/Resolving]
  - Cough [Recovering/Resolving]
  - Blood pressure fluctuation [Unknown]
  - Thirst [Unknown]
  - Dehydration [Unknown]
  - Osteoarthritis [Unknown]
  - Nasopharyngitis [Unknown]
  - Blood test abnormal [Unknown]
  - Diarrhoea [Unknown]
  - Underdose [Unknown]
  - Spinal pain [Unknown]
  - Hepatic mass [Unknown]
  - Dyspnoea at rest [Recovering/Resolving]
  - Malignant neoplasm progression [Unknown]
  - Lip oedema [Unknown]
  - Rheumatic disorder [Unknown]
  - Dyspnoea exertional [Recovering/Resolving]
  - Constipation [Recovering/Resolving]
  - Hypertension [Unknown]
  - Nephrolithiasis [Not Recovered/Not Resolved]
  - Intestinal mass [Unknown]
  - Discomfort [Unknown]
  - Osteoporosis [Unknown]
  - Inappropriate schedule of drug administration [Unknown]
  - Arrhythmia [Unknown]
  - Blood pressure increased [Unknown]
  - Lymphadenopathy [Unknown]
  - Rhinorrhoea [Unknown]
  - Abdominal pain [Recovering/Resolving]
  - Abdominal pain upper [Unknown]

NARRATIVE: CASE EVENT DATE: 20030131
